FAERS Safety Report 24786435 (Version 1)
Quarter: 2024Q4

REPORT INFORMATION
  Report Type: Spontaneous
  Country: US (occurrence: US)
  Receive Date: 20241230
  Receipt Date: 20241230
  Transmission Date: 20250115
  Serious: No
  Sender: ROCHE
  Company Number: US-ROCHE-10000166425

PATIENT
  Sex: Female

DRUGS (5)
  1. ACTEMRA [Suspect]
     Active Substance: TOCILIZUMAB
     Indication: Essential hypertension
     Route: 058
  2. DULOXETINE [Concomitant]
     Active Substance: DULOXETINE
  3. HYDROCHLOROTHIAZIDE [Concomitant]
     Active Substance: HYDROCHLOROTHIAZIDE
  4. LOSARTAN [Concomitant]
     Active Substance: LOSARTAN
  5. MORPHINE [Concomitant]
     Active Substance: MORPHINE

REACTIONS (1)
  - Hypertension [Not Recovered/Not Resolved]
